FAERS Safety Report 12513143 (Version 1)
Quarter: 2016Q2

REPORT INFORMATION
  Report Type: Spontaneous
  Country: US (occurrence: None)
  Receive Date: 20160629
  Receipt Date: 20160629
  Transmission Date: 20160815
  Serious: Yes (Hospitalization)
  Sender: FDA-Public Use
  Company Number: None

PATIENT
  Age: 72 Year
  Sex: Male
  Weight: 90.2 kg

DRUGS (2)
  1. ENOXAPARIN [Suspect]
     Active Substance: ENOXAPARIN
     Indication: PORTAL VEIN THROMBOSIS
     Route: 058
     Dates: start: 20160603, end: 20160609
  2. WARFARIN [Suspect]
     Active Substance: WARFARIN
     Indication: PORTAL VEIN THROMBOSIS
     Dosage: MG PO
     Route: 048
     Dates: start: 20160603

REACTIONS (4)
  - International normalised ratio abnormal [None]
  - Haemoglobin decreased [None]
  - Haematoma [None]
  - Liver function test increased [None]

NARRATIVE: CASE EVENT DATE: 20160609
